FAERS Safety Report 4580938-5 (Version None)
Quarter: 2005Q1

REPORT INFORMATION
  Report Type: 
  Country: None (occurrence: None)
  Receive Date: 20050214
  Receipt Date: 20040629
  Transmission Date: 20050727
  Serious: No
  Sender: FDA-Public Use
  Company Number: US-GLAXOSMITHKLINE-A0516457A

PATIENT
  Age: 64 Year
  Sex: Female
  Weight: 59.5 kg

DRUGS (10)
  1. LAMICTAL [Suspect]
     Indication: EPILEPSY
     Dosage: 50MG TWICE PER DAY
     Route: 048
     Dates: start: 20040420
  2. DEPAKOTE [Concomitant]
     Indication: EPILEPSY
     Dosage: 2000MG PER DAY
     Route: 048
     Dates: start: 20030806, end: 20040420
  3. PRIMIDONE [Concomitant]
     Indication: EPILEPSY
     Dosage: 500MG PER DAY
     Route: 048
     Dates: start: 20030627
  4. COLACE [Concomitant]
     Indication: CONSTIPATION
     Dates: start: 20030320
  5. CLARITIN [Concomitant]
     Dates: start: 20021225
  6. CALCIUM CARBONATE [Concomitant]
     Indication: OSTEOPOROSIS
     Route: 065
     Dates: start: 20021011
  7. ASPIRIN [Concomitant]
     Indication: THROMBOSIS PROPHYLAXIS
     Route: 065
     Dates: start: 20020806
  8. ALBUTEROL [Concomitant]
     Route: 055
     Dates: start: 20010425
  9. AMOXICILLIN [Concomitant]
     Indication: PROPHYLAXIS
     Dates: start: 20040401, end: 20040401
  10. MULTIVITAMIN [Concomitant]
     Dates: start: 20030222

REACTIONS (2)
  - ABNORMAL BEHAVIOUR [None]
  - SEDATION [None]
